FAERS Safety Report 13821811 (Version 1)
Quarter: 2017Q3

REPORT INFORMATION
  Report Type: Spontaneous
  Country: CA (occurrence: CA)
  Receive Date: 20170801
  Receipt Date: 20170801
  Transmission Date: 20171127
  Serious: Yes (Other)
  Sender: FDA-Public Use
  Company Number: CA-JNJFOC-20170724417

PATIENT
  Age: 58 Year
  Sex: Male
  Weight: 73.94 kg

DRUGS (4)
  1. INVEGA SUSTENNA [Suspect]
     Active Substance: PALIPERIDONE PALMITATE
     Indication: OBSESSIVE-COMPULSIVE DISORDER
     Route: 030
  2. INVEGA SUSTENNA [Suspect]
     Active Substance: PALIPERIDONE PALMITATE
     Indication: ATTENTION DEFICIT/HYPERACTIVITY DISORDER
     Route: 030
  3. INVEGA SUSTENNA [Suspect]
     Active Substance: PALIPERIDONE PALMITATE
     Indication: SCHIZOPHRENIA
     Route: 030
  4. TYLENOL [Concomitant]
     Active Substance: ACETAMINOPHEN
     Indication: PRODUCT USED FOR UNKNOWN INDICATION
     Route: 065

REACTIONS (13)
  - Myalgia [Unknown]
  - Erection increased [Unknown]
  - Fear [Unknown]
  - Confusional state [Unknown]
  - Micturition disorder [Unknown]
  - Shock [Unknown]
  - Inappropriate schedule of drug administration [Unknown]
  - Suicidal ideation [Unknown]
  - Headache [Unknown]
  - Paranoia [Unknown]
  - Anger [Unknown]
  - Dizziness [Unknown]
  - Off label use [Unknown]
